FAERS Safety Report 13681365 (Version 1)
Quarter: 2017Q2

REPORT INFORMATION
  Report Type: Report from Study
  Country: US (occurrence: US)
  Receive Date: 20170623
  Receipt Date: 20170623
  Transmission Date: 20170830
  Serious: Yes (Death, Other)
  Sender: FDA-Public Use
  Company Number: US-ROCHE-1952179

PATIENT
  Sex: Male

DRUGS (1)
  1. ALTEPLASE [Suspect]
     Active Substance: ALTEPLASE
     Indication: PLEURAL DISORDER
     Dosage: DOSE: DOSE: 6 MG OF ALTEPLASE IN 50 ML OF
     Route: 034

REACTIONS (3)
  - Cardiac arrest [Unknown]
  - Aortic rupture [Unknown]
  - Traumatic haemorrhage [Fatal]
